FAERS Safety Report 5677061-5 (Version None)
Quarter: 2008Q1

REPORT INFORMATION
  Report Type: 
  Country: None (occurrence: None)
  Receive Date: 20080318
  Receipt Date: 20080305
  Transmission Date: 20080703
  Serious: Yes (Death, Other)
  Sender: FDA-Public Use
  Company Number: 2007-00943

PATIENT
  Age: 58 Year
  Sex: Female
  Weight: 44 kg

DRUGS (16)
  1. VELCADE [Suspect]
     Indication: MULTIPLE MYELOMA
     Dosage: 1.50 MG, INTRAVENOUS
     Route: 042
     Dates: start: 20070220, end: 20070302
  2. DEXAMETHASONE TAB [Suspect]
     Indication: MULTIPLE MYELOMA
     Dosage: 20.00 MG, INTRAVENOUS
     Route: 042
     Dates: start: 20070220, end: 20070303
  3. MUCOSTA         (REBAMIPIDE) [Concomitant]
  4. ALOSENN (TARAXACUM OFFICINALE, ACHILLEA, SENNA LEAF, RUBIA ROOT TINCTU [Concomitant]
  5. VIT K CAP [Concomitant]
  6. RABEPRAZOLE SODIUM [Concomitant]
  7. LOXONIN (LOXOPROFEN SODIUM) [Concomitant]
  8. HALCION [Concomitant]
  9. LASIX [Concomitant]
  10. ALDACTONE [Concomitant]
  11. FENTANYL [Concomitant]
  12. FULCALIQ 1 [Concomitant]
  13. NEO-MINOPHAGEN C (GLYCYRRHIZIC ACID, AMMONIUM SALT) [Concomitant]
  14. BISPHONAL (DISODIUM INCADRONATE) [Concomitant]
  15. RED BLOOD CELLS [Concomitant]
  16. PLATELETS [Concomitant]

REACTIONS (18)
  - BEDRIDDEN [None]
  - BONE MARROW FAILURE [None]
  - BRONCHOPULMONARY ASPERGILLOSIS [None]
  - CONDITION AGGRAVATED [None]
  - FUNGAL INFECTION [None]
  - HEPATIC STEATOSIS [None]
  - HERPES ZOSTER [None]
  - HYPOAESTHESIA [None]
  - LIVER DISORDER [None]
  - LUNG DISORDER [None]
  - MALAISE [None]
  - MULTI-ORGAN FAILURE [None]
  - PLATELET COUNT DECREASED [None]
  - RENAL DISORDER [None]
  - RENAL FAILURE [None]
  - TREMOR [None]
  - TUMOUR LYSIS SYNDROME [None]
  - WHITE BLOOD CELL COUNT DECREASED [None]
